FAERS Safety Report 8181032-7 (Version None)
Quarter: 2012Q1

REPORT INFORMATION
  Report Type: 
  Country: None (occurrence: None)
  Receive Date: 20120302
  Receipt Date: 20120228
  Transmission Date: 20120608
  Serious: Yes (Other)
  Sender: FDA-Public Use
  Company Number: US-PFIZER INC-2012053825

PATIENT
  Sex: Male

DRUGS (2)
  1. LIPITOR [Suspect]
     Dosage: UNK
  2. GEODON [Suspect]
     Dosage: UNK

REACTIONS (2)
  - SCHIZOPHRENIA [None]
  - DEMENTIA ALZHEIMER'S TYPE [None]
